FAERS Safety Report 16093520 (Version 1)
Quarter: 2019Q1

REPORT INFORMATION
  Report Type: Spontaneous
  Country: US (occurrence: US)
  Receive Date: 20190320
  Receipt Date: 20190320
  Transmission Date: 20190418
  Serious: Yes (Other)
  Sender: FDA-Public Use
  Company Number: US-GLAXOSMITHKLINE-US2019GSK046672

PATIENT

DRUGS (1)
  1. LAMICTAL [Suspect]
     Active Substance: LAMOTRIGINE
     Indication: SEIZURE
     Dosage: UNK
     Dates: start: 1996

REACTIONS (7)
  - Fall [Unknown]
  - Vagal nerve stimulator implantation [Unknown]
  - Cerebral lobotomy [Unknown]
  - Upper limb fracture [Unknown]
  - Joint arthroplasty [Unknown]
  - Temporal lobe epilepsy [Unknown]
  - Generalised tonic-clonic seizure [Unknown]
